FAERS Safety Report 15396191 (Version 1)
Quarter: 2018Q3

REPORT INFORMATION
  Report Type: Spontaneous
  Country: US (occurrence: US)
  Receive Date: 20180912
  Receipt Date: 20180912
  Transmission Date: 20181010
  Serious: Yes (Disabling)
  Sender: FDA-Public Use
  Company Number: None

PATIENT
  Age: 58 Year
  Sex: Male
  Weight: 68.04 kg

DRUGS (5)
  1. EPLERENONE. [Concomitant]
     Active Substance: EPLERENONE
  2. FUROSEMIDE. [Concomitant]
     Active Substance: FUROSEMIDE
  3. CIPROFLOXACIN. [Suspect]
     Active Substance: CIPROFLOXACIN
     Indication: INFECTION PROPHYLAXIS
     Dates: start: 20180202, end: 20180515
  4. B?1 [Concomitant]
  5. FOLIC ACID. [Concomitant]
     Active Substance: FOLIC ACID

REACTIONS (2)
  - Arthralgia [None]
  - Joint range of motion decreased [None]

NARRATIVE: CASE EVENT DATE: 20180515
